FAERS Safety Report 11397430 (Version 2)
Quarter: 2015Q3

REPORT INFORMATION
  Report Type: Spontaneous
  Country: US (occurrence: US)
  Receive Date: 20150819
  Receipt Date: 20150907
  Transmission Date: 20151125
  Serious: No
  Sender: FDA-Public Use
  Company Number: US-BAYER-2015-403214

PATIENT
  Age: 75 Year
  Sex: Male
  Weight: 88.44 kg

DRUGS (5)
  1. ALEVE [Suspect]
     Active Substance: NAPROXEN SODIUM
     Indication: PAIN PROPHYLAXIS
     Dosage: 1-2 DF, PRN
     Route: 048
  2. LIPITOR [Concomitant]
     Active Substance: ATORVASTATIN CALCIUM
     Dosage: UNK
  3. LISINOPRIL. [Concomitant]
     Active Substance: LISINOPRIL
     Dosage: UNK
  4. BAYER ASPIRIN REGIMEN REGULAR 325 MG STRENGTH [Concomitant]
     Active Substance: ASPIRIN
     Indication: ISCHAEMIC HEART DISEASE PROPHYLAXIS
     Dosage: UNK
  5. ALEVE [Suspect]
     Active Substance: NAPROXEN SODIUM
     Indication: MUSCULOSKELETAL STIFFNESS

REACTIONS (1)
  - Product use issue [None]
